FAERS Safety Report 20733785 (Version 2)
Quarter: 2022Q2

REPORT INFORMATION
  Report Type: Spontaneous
  Country: JP (occurrence: JP)
  Receive Date: 20220421
  Receipt Date: 20220629
  Transmission Date: 20220721
  Serious: Yes (Hospitalization)
  Sender: FDA-Public Use
  Company Number: JP-BRISTOL-MYERS SQUIBB COMPANY-2022-022220

PATIENT
  Age: 8 Decade
  Sex: Female

DRUGS (12)
  1. ORENCIA [Suspect]
     Active Substance: ABATACEPT
     Indication: Rheumatoid arthritis
     Route: 058
     Dates: start: 202002, end: 202006
  2. KEVZARA [Suspect]
     Active Substance: SARILUMAB
     Indication: Product used for unknown indication
     Dates: start: 202101, end: 202111
  3. ACTEMRA [Suspect]
     Active Substance: TOCILIZUMAB
     Indication: Product used for unknown indication
     Dates: start: 202006, end: 202012
  4. PREDNISOLONE [Concomitant]
     Active Substance: PREDNISOLONE
     Indication: Product used for unknown indication
     Dates: start: 201909, end: 202002
  5. PREDNISOLONE [Concomitant]
     Active Substance: PREDNISOLONE
     Dates: start: 202002, end: 202103
  6. PREDNISOLONE [Concomitant]
     Active Substance: PREDNISOLONE
     Dates: start: 202103, end: 202109
  7. PREDNISOLONE [Concomitant]
     Active Substance: PREDNISOLONE
     Dates: start: 202109, end: 202110
  8. METHOTREXATE [Concomitant]
     Active Substance: METHOTREXATE
     Indication: Product used for unknown indication
     Dates: start: 202001, end: 202008
  9. METHOTREXATE [Concomitant]
     Active Substance: METHOTREXATE
     Dates: start: 202008, end: 202104
  10. METHOTREXATE [Concomitant]
     Active Substance: METHOTREXATE
     Dates: start: 202104, end: 202202
  11. AMOXICILLIN [Concomitant]
     Active Substance: AMOXICILLIN
     Indication: Product used for unknown indication
     Dates: start: 202008, end: 202009
  12. AMOXICILLIN [Concomitant]
     Active Substance: AMOXICILLIN
     Dates: start: 202009, end: 202202

REACTIONS (1)
  - Abscess limb [Unknown]
